FAERS Safety Report 21767541 (Version 1)
Quarter: 2022Q4

REPORT INFORMATION
  Report Type: Report from Study
  Country: BR (occurrence: BR)
  Receive Date: 20221222
  Receipt Date: 20221222
  Transmission Date: 20230112
  Serious: Yes (Other)
  Sender: FDA-Public Use
  Company Number: BR-BAYER-2022A171966

PATIENT
  Age: 74 Year
  Sex: Female

DRUGS (4)
  1. STIVARGA [Suspect]
     Active Substance: REGORAFENIB
     Indication: Colorectal cancer
     Dosage: 120 MG, QD (IN THE MORNING)
     Dates: start: 202211
  2. STIVARGA [Suspect]
     Active Substance: REGORAFENIB
     Indication: Colorectal cancer
     Dosage: UNK
     Dates: start: 20221208
  3. NITRENDIPINO [Concomitant]
     Indication: Hypertension
     Dosage: 10 MG
  4. LOSARTAN [Concomitant]
     Active Substance: LOSARTAN
     Indication: Hypertension
     Dosage: 50 MG

REACTIONS (4)
  - Hyperkeratosis [Recovering/Resolving]
  - Skin discolouration [Recovering/Resolving]
  - Pain [None]
  - Off label use [None]

NARRATIVE: CASE EVENT DATE: 20221101
